FAERS Safety Report 8606210 (Version 2)
Quarter: 2012Q4

REPORT INFORMATION
  Report Type: 
  Country: US (occurrence: US)
  Receive Date: 20120608
  Receipt Date: 20121008
  Transmission Date: 20130627
  Serious: No
  Sender: FDA-Public Use
  Company Number: US-ASTRAZENECA-2012SE19350

PATIENT
  Age: 45 Year
  Sex: Male

DRUGS (3)
  1. ATACAND [Suspect]
     Route: 048
  2. NEXIUM [Suspect]
     Route: 048
  3. CRESTOR [Suspect]
     Route: 048

REACTIONS (6)
  - Gastrooesophageal reflux disease [Unknown]
  - Hypertension [Unknown]
  - Malaise [Unknown]
  - Muscle spasms [Unknown]
  - Muscle fatigue [Unknown]
  - Drug dose omission [Unknown]
